FAERS Safety Report 19711563 (Version 1)
Quarter: 2021Q3

REPORT INFORMATION
  Report Type: Report from Study
  Country: US (occurrence: US)
  Receive Date: 20210817
  Receipt Date: 20210817
  Transmission Date: 20211014
  Serious: Yes (Other)
  Sender: FDA-Public Use
  Company Number: US-SHIRE-US202004997

PATIENT
  Age: 58 Year
  Sex: Female

DRUGS (2)
  1. HUMAN NORMAL IMMUNOGLOBULIN; LIQUID [Suspect]
     Active Substance: HUMAN IMMUNOGLOBULIN G
     Indication: IMMUNODEFICIENCY COMMON VARIABLE
     Dosage: 30 GRAM, 1X A MONTH
     Route: 042
     Dates: start: 2015
  2. HUMAN NORMAL IMMUNOGLOBULIN; LIQUID [Suspect]
     Active Substance: HUMAN IMMUNOGLOBULIN G
     Dosage: 30 GRAM, 1X/2WKS
     Route: 042

REACTIONS (13)
  - Attention deficit hyperactivity disorder [Unknown]
  - Respiratory failure [Unknown]
  - Phlebitis [Unknown]
  - Poor venous access [Unknown]
  - Loss of consciousness [Recovered/Resolved]
  - Nasopharyngitis [Unknown]
  - Viral infection [Unknown]
  - Condition aggravated [Unknown]
  - Myocardial infarction [Unknown]
  - Illness [Unknown]
  - Blood pressure increased [Unknown]
  - Hypotension [Unknown]
  - Hyperhidrosis [Unknown]

NARRATIVE: CASE EVENT DATE: 201904
